FAERS Safety Report 4925611-6 (Version None)
Quarter: 2006Q1

REPORT INFORMATION
  Report Type: 
  Country: None (occurrence: None)
  Receive Date: 20060228
  Receipt Date: 20050106
  Transmission Date: 20060701
  Serious: No
  Sender: FDA-Public Use
  Company Number: US-GLAXOSMITHKLINE-A0539698A

PATIENT
  Age: 42 Year
  Sex: Male

DRUGS (3)
  1. LAMICTAL [Suspect]
     Indication: BIPOLAR DISORDER
     Dosage: 150MG TWICE PER DAY
     Route: 048
     Dates: start: 20040801
  2. ZYRTEC [Concomitant]
  3. TESTOSTERONE PATCH [Concomitant]

REACTIONS (1)
  - HEARING IMPAIRED [None]
